FAERS Safety Report 5786590-5 (Version None)
Quarter: 2008Q2

REPORT INFORMATION
  Report Type: 
  Country: None (occurrence: None)
  Receive Date: 20080624
  Receipt Date: 20070712
  Transmission Date: 20081010
  Serious: No
  Sender: FDA-Public Use
  Company Number: US-ASTRAZENECA-2007UW16372

PATIENT
  Age: 32 Year
  Sex: Female
  Weight: 174 kg

DRUGS (5)
  1. PULMICORT RESPULES [Suspect]
     Indication: ASTHMA
     Route: 055
  2. SINGULAIR [Concomitant]
  3. NASONEX [Concomitant]
  4. DUONEB [Concomitant]
  5. ADVAIR DISKUS 100/50 [Concomitant]

REACTIONS (3)
  - GINGIVAL DISCOLOURATION [None]
  - GINGIVAL DISORDER [None]
  - GINGIVAL SWELLING [None]
